FAERS Safety Report 17418993 (Version 1)
Quarter: 2020Q1

REPORT INFORMATION
  Report Type: Report from Study
  Country: US (occurrence: US)
  Receive Date: 20200214
  Receipt Date: 20200214
  Transmission Date: 20200409
  Serious: Yes (Life-Threatening, Hospitalization)
  Sender: FDA-Public Use
  Company Number: NVSC2020US039544

PATIENT
  Age: 3 Year

DRUGS (7)
  1. METHOTREXATE. [Suspect]
     Active Substance: METHOTREXATE
     Dosage: 20 MG/M2/DOSE/WEEKLYDAYS 8,15, 22, 29, 36, 43,50, 57, 64, 71, 78
     Route: 048
     Dates: start: 20200114, end: 20200205
  2. VINCRISTINE [Concomitant]
     Active Substance: VINCRISTINE
     Indication: ACUTE LYMPHOCYTIC LEUKAEMIA
     Dosage: 1.19 MG, QD ON DAYS 1, 29, AND 57
     Route: 042
     Dates: start: 20200108, end: 20200205
  3. PREDNISONE. [Concomitant]
     Active Substance: PREDNISONE
     Indication: ACUTE LYMPHOCYTIC LEUKAEMIA
     Dosage: 20 MG/M2, BID DAYS 1-5, 29-33, 57-61
     Route: 048
     Dates: start: 20200108, end: 20200205
  4. ATIVAN [Concomitant]
     Active Substance: LORAZEPAM
     Indication: PRODUCT USED FOR UNKNOWN INDICATION
     Route: 065
  5. INC424A [Suspect]
     Active Substance: RUXOLITINIB
     Indication: ACUTE LYMPHOCYTIC LEUKAEMIA
     Dosage: 40 MG, BID, DAYS 1-14, 29-42, 57-70
     Route: 048
     Dates: start: 20200108, end: 20200205
  6. MERCAPTOPURINE. [Suspect]
     Active Substance: MERCAPTOPURINE
     Indication: ACUTE LYMPHOCYTIC LEUKAEMIA
     Dosage: 60 MG, DAYS 1 TO 84
     Route: 048
     Dates: start: 20200108, end: 20200205
  7. METHOTREXATE. [Suspect]
     Active Substance: METHOTREXATE
     Indication: ACUTE LYMPHOCYTIC LEUKAEMIA
     Dosage: 15 MG, QD, ON DAYS 1 AND 29 OF CYCLES 1 AND 2
     Route: 037
     Dates: start: 20200108, end: 20200205

REACTIONS (7)
  - Aspartate aminotransferase increased [Recovering/Resolving]
  - Dehydration [Recovering/Resolving]
  - Anaemia [Recovered/Resolved]
  - Pyrexia [Recovered/Resolved]
  - Somnolence [Recovered/Resolved]
  - Upper respiratory tract infection [Recovering/Resolving]
  - Alanine aminotransferase increased [Recovering/Resolving]

NARRATIVE: CASE EVENT DATE: 20200203
